FAERS Safety Report 23568896 (Version 1)
Quarter: 2024Q1

REPORT INFORMATION
  Report Type: Report from Study
  Country: US (occurrence: US)
  Receive Date: 20240227
  Receipt Date: 20240227
  Transmission Date: 20240410
  Serious: No
  Sender: FDA-Public Use
  Company Number: US-ORG100014127-2023000316

PATIENT
  Age: 66 Year
  Sex: Female

DRUGS (14)
  1. LYSODREN [Suspect]
     Active Substance: MITOTANE
     Indication: Adrenal gland cancer
     Dosage: TAKE 04 TABLETS BY MOUTH THREE TIME DAILY
     Route: 048
     Dates: start: 20230112, end: 202303
  2. METOPIRONE [Suspect]
     Active Substance: METYRAPONE
     Indication: Cushing^s syndrome
  3. AMLODIPINE [Concomitant]
     Active Substance: AMLODIPINE BESYLATE
     Indication: Product used for unknown indication
  4. CIPROFLOXACN TAB 750MG [Concomitant]
     Indication: Product used for unknown indication
  5. CISPLATIN POW [Concomitant]
     Indication: Product used for unknown indication
  6. DOXORUBICIN INJ 50/25ML [Concomitant]
     Indication: Product used for unknown indication
  7. ETOPOSIDE POW [Concomitant]
     Indication: Product used for unknown indication
  8. GRANIX [Concomitant]
     Active Substance: TBO-FILGRASTIM
     Indication: Product used for unknown indication
  9. KLOR-CON M20 TAB 20MEQ ER [Concomitant]
     Indication: Product used for unknown indication
  10. LIPITOR TAB 10MG [Concomitant]
     Indication: Product used for unknown indication
  11. LOPERAMIDE CAP 2MG [Concomitant]
     Indication: Product used for unknown indication
  12. MULTI VITAMI TAB [Concomitant]
     Indication: Product used for unknown indication
  13. ONDANSETRON [Concomitant]
     Active Substance: ONDANSETRON
     Indication: Product used for unknown indication
  14. PROCHLORPER TAB 10MG [Concomitant]
     Indication: Product used for unknown indication

REACTIONS (2)
  - Drug ineffective [Recovered/Resolved]
  - Off label use [Unknown]

NARRATIVE: CASE EVENT DATE: 20230101
